FAERS Safety Report 8244372-9 (Version None)
Quarter: 2012Q1

REPORT INFORMATION
  Report Type: 
  Country: None (occurrence: None)
  Receive Date: 20120329
  Receipt Date: 20120322
  Transmission Date: 20120608
  Serious: Yes (Other)
  Sender: FDA-Public Use
  Company Number: JP-VALEANT-2012VX001388

PATIENT

DRUGS (4)
  1. OXALIPLATIN [Suspect]
     Route: 042
  2. LEUCOVORIN CALCIUM [Suspect]
     Route: 042
  3. FLUOROURACIL [Suspect]
     Route: 042
  4. FLUOROURACIL [Suspect]
     Route: 042

REACTIONS (1)
  - NEUROTOXICITY [None]
